FAERS Safety Report 6416471-5 (Version None)
Quarter: 2009Q4

REPORT INFORMATION
  Report Type: 
  Country: None (occurrence: None)
  Receive Date: 20091027
  Receipt Date: 20091013
  Transmission Date: 20100525
  Serious: Yes (Hospitalization, Other)
  Sender: FDA-Public Use
  Company Number: PHHY2009BR44524

PATIENT
  Age: 55 Year
  Sex: Female
  Weight: 100 kg

DRUGS (7)
  1. FORASEQ [Suspect]
     Indication: DYSPNOEA
     Dosage: 1 DF, BID
  2. BALCOR [Concomitant]
     Indication: CARDIAC DISORDER
     Dosage: 1 DF, BID
  3. ATENSINA [Concomitant]
     Indication: CARDIAC DISORDER
     Dosage: 1 DF, TID
  4. MAREVAN [Concomitant]
     Indication: CARDIAC DISORDER
     Dosage: 1 DF, QD
  5. LIPITOR [Concomitant]
     Indication: CARDIAC DISORDER
     Dosage: 40 MG AT NIGHT
  6. PURAN T4 [Concomitant]
     Indication: CARDIAC DISORDER
     Dosage: 1 DF MORNING
  7. DIOVAN [Concomitant]
     Dosage: 300 MG, UNK

REACTIONS (6)
  - ARRHYTHMIA [None]
  - ATRIAL FIBRILLATION [None]
  - CARDIAC DISORDER [None]
  - LUNG DISORDER [None]
  - NERVOUSNESS [None]
  - PRODUCT QUALITY ISSUE [None]
